FAERS Safety Report 5871163-6 (Version None)
Quarter: 2008Q3

REPORT INFORMATION
  Report Type: 
  Country: None (occurrence: None)
  Receive Date: 20080902
  Receipt Date: 20080822
  Transmission Date: 20090109
  Serious: Yes (Death, Other)
  Sender: FDA-Public Use
  Company Number: 2008US002221

PATIENT
  Age: 44 Year
  Sex: Male

DRUGS (2)
  1. PROGRAF [Suspect]
     Indication: LUNG TRANSPLANT
  2. AZATHIOPRINE(AZATHIOPRINE SODIUM) [Suspect]
     Indication: LUNG TRANSPLANT

REACTIONS (13)
  - B-CELL LYMPHOMA [None]
  - FEBRILE NEUTROPENIA [None]
  - HERPES ZOSTER [None]
  - HUMAN HERPESVIRUS 8 INFECTION [None]
  - KAPOSI'S SARCOMA [None]
  - MULTI-ORGAN FAILURE [None]
  - PANCYTOPENIA [None]
  - PLEURAL EFFUSION [None]
  - PLEURAL HAEMORRHAGE [None]
  - RASH PRURITIC [None]
  - SEPSIS [None]
  - TACHYCARDIA [None]
  - TREATMENT FAILURE [None]
